FAERS Safety Report 8573154-3 (Version None)
Quarter: 2012Q3

REPORT INFORMATION
  Report Type: 
  Country: None (occurrence: None)
  Receive Date: 20120806
  Receipt Date: 20120727
  Transmission Date: 20120928
  Serious: Yes (Hospitalization)
  Sender: FDA-Public Use
  Company Number: US-BAYER-2012-076814

PATIENT
  Age: 40 Year
  Sex: Female
  Weight: 76.19 kg

DRUGS (10)
  1. METFORMIN HYDROCHLORIDE [Concomitant]
     Dosage: 500 MG, DAILY
     Dates: start: 20100603
  2. GLUCOSAMINE [Concomitant]
  3. NEURONTIN [Concomitant]
     Route: 048
  4. MOMETASONE FUROATE [Concomitant]
     Dosage: 50 ?G, DAILY
     Route: 045
     Dates: start: 20100621
  5. YAZ [Suspect]
  6. MOBIC [Concomitant]
     Dosage: 15 MG, DAILY
     Dates: start: 20100603
  7. FENOFIBRATE [Concomitant]
     Indication: BLOOD CHOLESTEROL INCREASED
     Dosage: 120 MG, DAILY
     Route: 048
  8. OMEPRAZOLE [Concomitant]
     Dosage: 20 MG, DAILY
     Route: 048
     Dates: start: 20100603
  9. CLARITIN [Concomitant]
     Dosage: 100 MG, DAILY
     Route: 048
  10. TRIAMCINOLONE ACETONIDE [Concomitant]
     Dosage: UNK UNK, BID
     Route: 048
     Dates: start: 20100621

REACTIONS (1)
  - PULMONARY EMBOLISM [None]
